FAERS Safety Report 16919929 (Version 2)
Quarter: 2019Q4

REPORT INFORMATION
  Report Type: Report from Study
  Country: RU (occurrence: RU)
  Receive Date: 20191015
  Receipt Date: 20191018
  Transmission Date: 20200122
  Serious: Yes (Death)
  Sender: FDA-Public Use
  Company Number: RU-EMD SERONO-E2B_90071139

PATIENT
  Age: 59 Year
  Sex: Male
  Weight: 61 kg

DRUGS (6)
  1. OMNITUS [BUTAMIRATE CITRATE] [Concomitant]
     Indication: COUGH
     Route: 048
     Dates: start: 20170621
  2. L-THYROXINE                        /00068002/ [Concomitant]
     Active Substance: LEVOTHYROXINE SODIUM
     Indication: HYPOTHYROIDISM
     Route: 048
     Dates: start: 20170315
  3. ACETYLCYSTEINE. [Concomitant]
     Active Substance: ACETYLCYSTEINE
     Indication: COUGH
     Route: 048
     Dates: start: 20170524
  4. AVELUMAB [Suspect]
     Active Substance: AVELUMAB
     Indication: RENAL CELL CARCINOMA
     Route: 042
     Dates: start: 20161210, end: 20170705
  5. AXITINIB [Suspect]
     Active Substance: AXITINIB
     Indication: RENAL CELL CARCINOMA
     Route: 048
     Dates: start: 20161110, end: 20170718
  6. ACETYLCYSTEINE. [Concomitant]
     Active Substance: ACETYLCYSTEINE
     Indication: WHEEZING

REACTIONS (1)
  - Death [Fatal]

NARRATIVE: CASE EVENT DATE: 20170820
